FAERS Safety Report 14282149 (Version 2)
Quarter: 2018Q1

REPORT INFORMATION
  Report Type: Spontaneous
  Country: PL (occurrence: PL)
  Receive Date: 20171213
  Receipt Date: 20180103
  Transmission Date: 20180508
  Serious: Yes (Hospitalization)
  Sender: FDA-Public Use
  Company Number: PL-PACIRA PHARMACEUTICALS, INC.-2017DEPPL00756

PATIENT

DRUGS (3)
  1. DEPOCYT [Suspect]
     Active Substance: CYTARABINE
     Indication: NON-HODGKIN^S LYMPHOMA
  2. DEPOCYT [Suspect]
     Active Substance: CYTARABINE
     Indication: ACUTE LYMPHOCYTIC LEUKAEMIA
     Dosage: UNK
     Route: 037
     Dates: start: 2017
  3. DEXAMETHASONE. [Concomitant]
     Active Substance: DEXAMETHASONE

REACTIONS (1)
  - Meningitis aseptic [Recovered/Resolved]

NARRATIVE: CASE EVENT DATE: 2017
